FAERS Safety Report 6497890-8 (Version None)
Quarter: 2009Q4

REPORT INFORMATION
  Report Type: 
  Country: None (occurrence: None)
  Receive Date: 20091215
  Receipt Date: 20091204
  Transmission Date: 20100525
  Serious: Yes (Other)
  Sender: FDA-Public Use
  Company Number: US-BAXTER-2009BH018931

PATIENT
  Age: 1 Hour
  Sex: Female

DRUGS (1)
  1. OXYTOCIN [Suspect]
     Indication: ACCIDENTAL EXPOSURE
     Route: 030

REACTIONS (2)
  - MEDICATION ERROR [None]
  - OVERDOSE [None]
